FAERS Safety Report 6137164-8 (Version None)
Quarter: 2009Q1

REPORT INFORMATION
  Report Type: 
  Country: None (occurrence: None)
  Receive Date: 20090330
  Receipt Date: 20090317
  Transmission Date: 20090719
  Serious: Yes (Hospitalization)
  Sender: FDA-Public Use
  Company Number: AR-ELI_LILLY_AND_COMPANY-AR200903002099

PATIENT
  Age: 23 Year
  Sex: Female

DRUGS (4)
  1. ZYPREXA [Suspect]
     Indication: HALLUCINATION
     Dosage: 5 MG, DAILY (1/D)
     Route: 048
     Dates: start: 20060101, end: 20090201
  2. ZYPREXA [Suspect]
     Dosage: 5 MG, DAILY (1/D)
     Route: 048
     Dates: start: 20090101
  3. ZYPREXA [Suspect]
     Dosage: 10 MG, DAILY (1/D)
     Route: 048
  4. QUETIAPINE FUMARATE [Concomitant]
     Dosage: UNK, UNKNOWN
     Route: 065

REACTIONS (8)
  - ABNORMAL BEHAVIOUR [None]
  - AGGRESSION [None]
  - ANTISOCIAL BEHAVIOUR [None]
  - DEPERSONALISATION [None]
  - DISORIENTATION [None]
  - HALLUCINATION [None]
  - PARANOIA [None]
  - TREMOR [None]
